FAERS Safety Report 5359500-2 (Version None)
Quarter: 2007Q2

REPORT INFORMATION
  Report Type: 
  Country: None (occurrence: None)
  Receive Date: 20070615
  Receipt Date: 20070604
  Transmission Date: 20071010
  Serious: Yes (Hospitalization)
  Sender: FDA-Public Use
  Company Number: US-PFIZER INC-2007046612

PATIENT
  Age: 15 Year
  Sex: Female

DRUGS (4)
  1. ZIPRASIDONE (CAPS) [Suspect]
     Route: 048
  2. LITHIUM CARBONATE [Concomitant]
  3. CLONIDINE [Concomitant]
  4. ARIPIPRAZOLE [Concomitant]
     Route: 048

REACTIONS (4)
  - GALACTORRHOEA [None]
  - HYPERPROLACTINAEMIA [None]
  - MENTAL DISORDER [None]
  - SUICIDAL IDEATION [None]
